FAERS Safety Report 6897607-9 (Version None)
Quarter: 2010Q3

REPORT INFORMATION
  Report Type: 
  Country: None (occurrence: None)
  Receive Date: 20100802
  Receipt Date: 20070702
  Transmission Date: 20110219
  Serious: No
  Sender: FDA-Public Use
  Company Number: US-PFIZER INC-2007052763

PATIENT
  Sex: Male
  Weight: 87.5 kg

DRUGS (13)
  1. LYRICA [Suspect]
     Indication: PAIN IN EXTREMITY
     Dates: start: 20070301
  2. NITROGLYCERIN [Concomitant]
  3. NEXIUM [Concomitant]
  4. ACETYLSALICYLIC ACID SRT [Concomitant]
  5. ACTOS [Concomitant]
  6. PLAVIX [Concomitant]
  7. DETROL LA [Concomitant]
  8. LISINOPRIL AND HYDROCHLOROTHIAZIDE [Concomitant]
     Dosage: 12.5MG/10MG
  9. NORVASC [Concomitant]
  10. METOPROLOL [Concomitant]
  11. PENTOXIFYLLINE [Concomitant]
  12. LANTUS [Concomitant]
  13. PAXIL [Concomitant]

REACTIONS (1)
  - DRUG INEFFECTIVE [None]
